FAERS Safety Report 13687711 (Version 2)
Quarter: 2017Q2

REPORT INFORMATION
  Report Type: Report from Study
  Country: US (occurrence: US)
  Receive Date: 20170625
  Receipt Date: 20170629
  Transmission Date: 20170830
  Serious: Yes (Death, Hospitalization, Other)
  Sender: FDA-Public Use
  Company Number: PHHY2017US091687

PATIENT
  Age: 72 Year
  Sex: Female
  Weight: 59 kg

DRUGS (6)
  1. PACLITAXEL. [Suspect]
     Active Substance: PACLITAXEL
     Indication: LUNG NEOPLASM MALIGNANT
     Dosage: 200 MG/M2, TIW
     Route: 042
     Dates: start: 20160511
  2. TRAMADOL. [Concomitant]
     Active Substance: TRAMADOL
     Indication: PAIN
     Dosage: 4 DF, QD
     Route: 048
     Dates: start: 20160320
  3. METOPROLOL. [Concomitant]
     Active Substance: METOPROLOL
     Indication: LUNG NEOPLASM MALIGNANT
     Dosage: UNK
     Route: 065
     Dates: start: 20160826
  4. CARBOPLATIN. [Suspect]
     Active Substance: CARBOPLATIN
     Indication: LUNG NEOPLASM MALIGNANT
     Dosage: 6 AUC, TIW
     Route: 042
     Dates: start: 20160511
  5. ZOPHREN [Suspect]
     Active Substance: ONDANSETRON
     Indication: NAUSEA
     Dosage: 8 MG, Q8H (Q8 PRN)
     Route: 048
     Dates: start: 20160503
  6. AVASTIN [Suspect]
     Active Substance: BEVACIZUMAB
     Indication: NON-SMALL CELL LUNG CANCER
     Dosage: 15 MG/KG, CYCLIC (EVERY 3 WEEKS)
     Route: 042
     Dates: start: 20160511, end: 20161004

REACTIONS (23)
  - Infarction [Unknown]
  - Feeding disorder [Unknown]
  - Proteinuria [Unknown]
  - Neoplasm progression [Fatal]
  - Dyspnoea exertional [Unknown]
  - Constipation [Not Recovered/Not Resolved]
  - Lung infiltration [Unknown]
  - Mental status changes [Unknown]
  - Myalgia [Unknown]
  - Faeces soft [Unknown]
  - Nausea [Unknown]
  - Lethargy [Unknown]
  - Pleural effusion [Unknown]
  - Abdominal pain [Unknown]
  - Headache [Not Recovered/Not Resolved]
  - Gastrointestinal sounds abnormal [Unknown]
  - Sleep disorder [Unknown]
  - Blood disorder [Unknown]
  - Vomiting [Unknown]
  - Confusional state [Unknown]
  - Syncope [Unknown]
  - Asthenia [Unknown]
  - Electrolyte imbalance [Unknown]

NARRATIVE: CASE EVENT DATE: 20160912
